FAERS Safety Report 11047024 (Version 2)
Quarter: 2015Q3

REPORT INFORMATION
  Report Type: Spontaneous
  Country: CA (occurrence: CA)
  Receive Date: 20150420
  Receipt Date: 20150728
  Transmission Date: 20151125
  Serious: Yes (Other)
  Sender: FDA-Public Use
  Company Number: CA-ROCHE-1564601

PATIENT
  Age: 36 Year
  Sex: Female

DRUGS (3)
  1. TAXOTERE [Suspect]
     Active Substance: DOCETAXEL
     Indication: BREAST CANCER
     Dosage: THERAPY DURATION: 3.0 MONTHS
     Route: 065
  2. HERCEPTIN [Suspect]
     Active Substance: TRASTUZUMAB
     Indication: BREAST CANCER
     Dosage: THERAPY DURATION: 2.0 YEARS
     Route: 065
  3. KADCYLA [Suspect]
     Active Substance: ADO-TRASTUZUMAB EMTANSINE
     Indication: HER-2 POSITIVE BREAST CANCER
     Dosage: THERAPY DURATION : 110.0 DAYS
     Route: 065

REACTIONS (3)
  - Nausea [Recovering/Resolving]
  - Heart rate increased [Recovering/Resolving]
  - Brain neoplasm malignant [Recovering/Resolving]
